FAERS Safety Report 5106502-7 (Version None)
Quarter: 2006Q3

REPORT INFORMATION
  Report Type: 
  Country: None (occurrence: None)
  Receive Date: 20060918
  Receipt Date: 20060801
  Transmission Date: 20061208
  Serious: Yes (Hospitalization, Other)
  Sender: FDA-Public Use
  Company Number: JP-AVENTIS-200612425JP

PATIENT
  Age: 26 Year
  Sex: Male
  Weight: 53.1 kg

DRUGS (5)
  1. LANTUS [Suspect]
     Indication: DIABETES MELLITUS INSULIN-DEPENDENT
     Dosage: DOSE: 10UNITS
     Route: 058
     Dates: start: 20040304
  2. LANTUS [Suspect]
     Dosage: DOSE: 6 UNITS
     Route: 058
  3. OPTICLIK (INSULIN INJECTION PEN) [Suspect]
  4. NOVORAPID [Concomitant]
     Route: 058
     Dates: start: 19980101
  5. NOVORAPID [Concomitant]
     Dosage: DOSE: 2-7-7-0 UNITS
     Route: 058

REACTIONS (4)
  - ALANINE AMINOTRANSFERASE INCREASED [None]
  - ASPARTATE AMINOTRANSFERASE INCREASED [None]
  - GAMMA-GLUTAMYLTRANSFERASE INCREASED [None]
  - HEPATIC FUNCTION ABNORMAL [None]
